FAERS Safety Report 11894338 (Version 1)
Quarter: 2016Q1

REPORT INFORMATION
  Report Type: Spontaneous
  Country: US (occurrence: None)
  Receive Date: 20160106
  Receipt Date: 20160106
  Transmission Date: 20160526
  Serious: No
  Sender: FDA-Public Use
  Company Number: None

PATIENT
  Age: 61 Year
  Sex: Female

DRUGS (1)
  1. ENBREL [Suspect]
     Active Substance: ETANERCEPT
     Indication: PSORIASIS
     Dosage: 50 MG?Q WEEKLY?SQ
     Dates: start: 20140319, end: 20160101

REACTIONS (2)
  - Psoriasis [None]
  - Condition aggravated [None]

NARRATIVE: CASE EVENT DATE: 20160101
